FAERS Safety Report 25021928 (Version 2)
Quarter: 2025Q2

REPORT INFORMATION
  Report Type: Report from Study
  Country: US (occurrence: US)
  Receive Date: 20250228
  Receipt Date: 20250407
  Transmission Date: 20250717
  Serious: Yes (Death, Hospitalization, Other)
  Sender: ACADIA PHARMACEUTICALS
  Company Number: US-ACADIA PHARMACEUTICALS INC.-ACA-2025-PIM-001923

PATIENT
  Sex: Male

DRUGS (1)
  1. NUPLAZID [Suspect]
     Active Substance: PIMAVANSERIN TARTRATE
     Indication: Parkinson^s disease psychosis
     Dosage: 34 MILLIGRAM, QD (AT NIGHTTIME)
     Route: 048
     Dates: start: 20190625

REACTIONS (6)
  - Dementia [Fatal]
  - Cardiac arrest [Fatal]
  - Pericardial effusion [Unknown]
  - Pericardial haemorrhage [Unknown]
  - Myocardial rupture [Unknown]
  - Chest pain [Unknown]
